FAERS Safety Report 4500096-2 (Version None)
Quarter: 2004Q4

REPORT INFORMATION
  Report Type: 
  Country: None (occurrence: None)
  Receive Date: 20041112
  Receipt Date: 20041109
  Transmission Date: 20050328
  Serious: Yes (Death)
  Sender: FDA-Public Use
  Company Number: US-GLAXOSMITHKLINE-A0533311A

PATIENT
  Age: 60 Year
  Sex: Male

DRUGS (2)
  1. WELLBUTRIN XL [Suspect]
     Indication: DEPRESSION
     Route: 048
  2. NO CONCURRENT MEDICATIONS [Concomitant]

REACTIONS (1)
  - CARDIAC FAILURE CONGESTIVE [None]
